FAERS Safety Report 26198532 (Version 1)
Quarter: 2025Q4

REPORT INFORMATION
  Report Type: Spontaneous
  Country: CA (occurrence: CA)
  Receive Date: 20251224
  Receipt Date: 20251224
  Transmission Date: 20260118
  Serious: Yes (Life-Threatening, Hospitalization, Other)
  Sender: HLS THERAPEUTICS
  Company Number: CA-HLS-202503269

PATIENT
  Age: 58 Year
  Sex: Female

DRUGS (9)
  1. ACETAMINOPHEN [Concomitant]
     Active Substance: ACETAMINOPHEN
     Dosage: NOT SPECIFIED DOSAGE FORM
     Route: 065
  2. ARIPIPRAZOLE [Concomitant]
     Active Substance: ARIPIPRAZOLE
     Dosage: NOT SPECIFIED DOSAGE FORM
     Route: 065
  3. CLOZARIL [Suspect]
     Active Substance: CLOZAPINE
     Indication: Schizophrenia
     Dosage: AMOUNT: 225 MILLIGRAM?TABLETS DOSAGE FORM?THERAPY DURATION: 69 DAYS
     Route: 048
  4. FERROUS FUMARATE [Concomitant]
     Active Substance: FERROUS FUMARATE
     Dosage: NOT SPECIFIED DOSAGE FORM
     Route: 065
  5. IBUPROFEN [Concomitant]
     Active Substance: IBUPROFEN
     Dosage: NOT SPECIFIED DOSAGE FORM
     Route: 065
  6. LACTULOSE [Concomitant]
     Active Substance: LACTULOSE
     Dosage: NOT SPECIFIED DOSAGE FORM
     Route: 065
  7. NITROFURANTOIN [Concomitant]
     Active Substance: NITROFURANTOIN
     Dosage: NOT SPECIFIED DOSAGE FORM
     Route: 065
  8. QUETIAPINE [Concomitant]
     Active Substance: QUETIAPINE
     Dosage: TABLETS DOSAGE FORM
     Route: 065
  9. SENNOSIDES [Concomitant]
     Active Substance: SENNOSIDES
     Dosage: NOT SPECIFIED DOSAGE FORM
     Route: 065

REACTIONS (8)
  - Abdominal pain [Recovering/Resolving]
  - Colitis ischaemic [Recovering/Resolving]
  - Faecaloma [Recovering/Resolving]
  - Gastrointestinal motility disorder [Recovering/Resolving]
  - Hypotension [Recovering/Resolving]
  - Large intestinal obstruction [Recovering/Resolving]
  - Large intestine perforation [Recovering/Resolving]
  - Tachycardia [Recovering/Resolving]
